FAERS Safety Report 8941634 (Version 3)
Quarter: 2017Q2

REPORT INFORMATION
  Report Type: Report from Study
  Country: FR (occurrence: FR)
  Receive Date: 20121203
  Receipt Date: 20170525
  Transmission Date: 20170830
  Serious: Yes (Other)
  Sender: FDA-Public Use
  Company Number: FR-ROCHE-1014807

PATIENT
  Age: 16 Year
  Sex: Female

DRUGS (14)
  1. SOMATROPIN [Suspect]
     Active Substance: SOMATROPIN
     Route: 058
     Dates: start: 200910
  2. SOMATROPIN [Suspect]
     Active Substance: SOMATROPIN
     Indication: FOETAL GROWTH RESTRICTION
     Route: 058
     Dates: start: 20071201
  3. SOMATROPIN [Suspect]
     Active Substance: SOMATROPIN
     Indication: GROWTH FAILURE
     Route: 058
     Dates: start: 200803
  4. SOMATROPIN [Suspect]
     Active Substance: SOMATROPIN
     Route: 058
     Dates: start: 200806
  5. SOMATROPIN [Suspect]
     Active Substance: SOMATROPIN
     Route: 058
     Dates: start: 201002
  6. SOMATROPIN [Suspect]
     Active Substance: SOMATROPIN
     Route: 058
     Dates: start: 201006
  7. SOMATROPIN [Suspect]
     Active Substance: SOMATROPIN
     Route: 058
     Dates: start: 201010, end: 20110110
  8. SINGULAIR [Concomitant]
     Active Substance: MONTELUKAST SODIUM
     Route: 065
     Dates: start: 20090728
  9. SOMATROPIN [Suspect]
     Active Substance: SOMATROPIN
     Route: 058
     Dates: start: 200809
  10. SOMATROPIN [Suspect]
     Active Substance: SOMATROPIN
     Route: 058
     Dates: start: 200812
  11. SOMATROPIN [Suspect]
     Active Substance: SOMATROPIN
     Route: 058
     Dates: start: 200903
  12. SOMATROPIN [Suspect]
     Active Substance: SOMATROPIN
     Route: 058
     Dates: start: 200907
  13. FERROSTRANE [Concomitant]
     Active Substance: SODIUM FEREDETATE
     Dosage: 2 SPOONS
     Route: 065
     Dates: start: 20110222
  14. CLARITINE [Concomitant]
     Active Substance: LORATADINE
     Dosage: 1 SPOON
     Route: 065
     Dates: start: 20101026

REACTIONS (3)
  - Large intestine polyp [Unknown]
  - Colon dysplasia [Unknown]
  - Off label use [Unknown]

NARRATIVE: CASE EVENT DATE: 201107
